FAERS Safety Report 5927099-5 (Version None)
Quarter: 2008Q4

REPORT INFORMATION
  Report Type: 
  Country: None (occurrence: None)
  Receive Date: 20081022
  Receipt Date: 20081013
  Transmission Date: 20090506
  Serious: No
  Sender: FDA-Public Use
  Company Number: US-B.I. PHARMACEUTICALS,INC./RIDGEFIELD-2007-BP-16289BP

PATIENT
  Sex: Male
  Weight: 90 kg

DRUGS (10)
  1. MIRAPEX [Suspect]
     Indication: PARKINSON'S DISEASE
     Dates: start: 20011001, end: 20070602
  2. SINEMET [Concomitant]
     Indication: PARKINSON'S DISEASE
     Dates: start: 20031101
  3. ENTACAPONE [Concomitant]
     Indication: PARKINSON'S DISEASE
     Dates: start: 20060601
  4. ASPIRIN [Concomitant]
  5. SELEGILINE HCL [Concomitant]
     Indication: PARKINSON'S DISEASE
  6. VIAGRA [Concomitant]
  7. ACETAMINOPHEN W/ CODEINE TAB [Concomitant]
     Indication: PAIN
     Route: 048
     Dates: start: 20040321
  8. ROPINIROLE HCL [Concomitant]
     Indication: PARKINSON'S DISEASE
     Dates: start: 20031125, end: 20040101
  9. COMTAN [Concomitant]
     Indication: PARKINSON'S DISEASE
     Dates: start: 20060626
  10. NAPROXEN [Concomitant]
     Indication: ARTHRALGIA

REACTIONS (8)
  - ANXIETY [None]
  - DEPRESSION [None]
  - EMOTIONAL DISTRESS [None]
  - FEAR [None]
  - HYPERSEXUALITY [None]
  - PAIN [None]
  - PATHOLOGICAL GAMBLING [None]
  - STRESS [None]
